FAERS Safety Report 18443233 (Version 2)
Quarter: 2020Q4

REPORT INFORMATION
  Report Type: Spontaneous
  Country: US (occurrence: US)
  Receive Date: 20201030
  Receipt Date: 20201216
  Transmission Date: 20210114
  Serious: No
  Sender: FDA-Public Use
  Company Number: US-ASTRAZENECA-2020SF35125

PATIENT
  Age: 976 Month
  Sex: Female
  Weight: 58.1 kg

DRUGS (1)
  1. LOKELMA [Suspect]
     Active Substance: SODIUM ZIRCONIUM CYCLOSILICATE
     Indication: BLOOD POTASSIUM INCREASED
     Dosage: 5 GM 1 PACKET ONCE A DAY FOR THE PAST 2-3 MONTHS 10.0G UNKNOWN
     Route: 048
     Dates: start: 20200529

REACTIONS (7)
  - Diarrhoea [Recovering/Resolving]
  - Cataract [Unknown]
  - Abdominal pain upper [Unknown]
  - Feeding disorder [Unknown]
  - Flatulence [Recovering/Resolving]
  - Illness [Unknown]
  - Sleep disorder [Unknown]

NARRATIVE: CASE EVENT DATE: 202010
